FAERS Safety Report 7251553-X (Version None)
Quarter: 2011Q1

REPORT INFORMATION
  Report Type: 
  Country: None (occurrence: None)
  Receive Date: 20110128
  Receipt Date: 20110121
  Transmission Date: 20110831
  Serious: Yes (Hospitalization)
  Sender: FDA-Public Use
  Company Number: US-ABBOTT-10P-163-0686093-00

PATIENT
  Sex: Male
  Weight: 78.088 kg

DRUGS (3)
  1. HUMIRA [Suspect]
     Route: 058
     Dates: end: 20090527
  2. HUMIRA [Suspect]
     Indication: CROHN'S DISEASE
     Dosage: LOADING DOSE
     Route: 058
     Dates: start: 20080501, end: 20090527
  3. HUMIRA [Suspect]
     Dosage: LOADING DOSE
     Route: 058

REACTIONS (1)
  - INTESTINAL FISTULA [None]
